FAERS Safety Report 9782297 (Version 1)
Quarter: 2013Q4

REPORT INFORMATION
  Report Type: Spontaneous
  Country: CN (occurrence: CN)
  Receive Date: 20131226
  Receipt Date: 20131226
  Transmission Date: 20140711
  Serious: Yes (Hospitalization)
  Sender: FDA-Public Use
  Company Number: PHHY2013CN148606

PATIENT
  Age: 86 Year
  Sex: Female

DRUGS (3)
  1. METFORMIN [Suspect]
     Indication: TYPE 2 DIABETES MELLITUS
     Dosage: 1 G, TID
  2. GLICLAZIDE [Concomitant]
     Indication: TYPE 2 DIABETES MELLITUS
     Dosage: 120 MG, PER DAY
  3. POLYETHYLENE GLYCOL [Concomitant]
     Indication: BOWEL PREPARATION

REACTIONS (8)
  - Urinary tract infection bacterial [Unknown]
  - Renal failure acute [Recovering/Resolving]
  - Oliguria [Recovering/Resolving]
  - Lactic acidosis [Recovering/Resolving]
  - Heart rate increased [Unknown]
  - Blood glucose decreased [Unknown]
  - Metabolic acidosis [Recovering/Resolving]
  - Blood pressure decreased [Unknown]
